FAERS Safety Report 9934675 (Version 3)
Quarter: 2014Q2

REPORT INFORMATION
  Report Type: Report from Study
  Country: DE (occurrence: DE)
  Receive Date: 20140228
  Receipt Date: 20140630
  Transmission Date: 20141212
  Serious: Yes (Hospitalization)
  Sender: FDA-Public Use
  Company Number: DE-ABBVIE-14P-062-1206104-00

PATIENT
  Age: 30 Year
  Sex: Male
  Weight: 65 kg

DRUGS (2)
  1. HUMIRA [Suspect]
     Indication: CROHN^S DISEASE
     Route: 058
     Dates: start: 20131010, end: 20140215
  2. HUMIRA [Suspect]
     Route: 058
     Dates: start: 20140602

REACTIONS (5)
  - Fistula [Recovering/Resolving]
  - Abscess [Recovering/Resolving]
  - Wound [Recovering/Resolving]
  - Immunodeficiency [Unknown]
  - Anal abscess [Unknown]
